FAERS Safety Report 22631617 (Version 1)
Quarter: 2023Q2

REPORT INFORMATION
  Report Type: Spontaneous
  Country: DE (occurrence: DE)
  Receive Date: 20230623
  Receipt Date: 20230623
  Transmission Date: 20230722
  Serious: Yes (Hospitalization)
  Sender: FDA-Public Use
  Company Number: DE-002147023-NVSC2023DE138482

PATIENT
  Sex: Female

DRUGS (20)
  1. LUCENTIS [Suspect]
     Active Substance: RANIBIZUMAB
     Indication: Neovascular age-related macular degeneration
     Dosage: 0.5 MG, (PREFILLED SYRINGE), (RIGHT EYE)
     Route: 065
     Dates: start: 20200924
  2. LUCENTIS [Suspect]
     Active Substance: RANIBIZUMAB
     Dosage: 0.5 MG, (PREFILLED SYRINGE), (RIGHT EYE)
     Route: 065
     Dates: start: 20201021
  3. LUCENTIS [Suspect]
     Active Substance: RANIBIZUMAB
     Dosage: 0.5 MG, (PREFILLED SYRINGE), (RIGHT EYE)
     Route: 065
     Dates: start: 20201202
  4. LUCENTIS [Suspect]
     Active Substance: RANIBIZUMAB
     Dosage: 0.5 MG, (PREFILLED SYRINGE), (RIGHT EYE)
     Route: 065
     Dates: start: 20210112
  5. LUCENTIS [Suspect]
     Active Substance: RANIBIZUMAB
     Dosage: 0.5 MG, (PREFILLED SYRINGE), (RIGHT EYE)
     Route: 065
     Dates: start: 20210222
  6. LUCENTIS [Suspect]
     Active Substance: RANIBIZUMAB
     Dosage: 0.5 MG, (PREFILLED SYRINGE), (RIGHT EYE)
     Route: 065
     Dates: start: 20210407
  7. LUCENTIS [Suspect]
     Active Substance: RANIBIZUMAB
     Dosage: 0.5 MG, (PREFILLED SYRINGE), (RIGHT EYE)
     Route: 065
     Dates: start: 20210519
  8. LUCENTIS [Suspect]
     Active Substance: RANIBIZUMAB
     Dosage: 0.5 MG, (PREFILLED SYRINGE), (RIGHT EYE)
     Route: 065
     Dates: start: 20210623
  9. LUCENTIS [Suspect]
     Active Substance: RANIBIZUMAB
     Dosage: 0.5 MG, (PREFILLED SYRINGE), (RIGHT EYE)
     Route: 065
     Dates: start: 20210728
  10. LUCENTIS [Suspect]
     Active Substance: RANIBIZUMAB
     Dosage: 0.5 MG, (PREFILLED SYRINGE), (RIGHT EYE)
     Route: 065
     Dates: start: 20210901
  11. LUCENTIS [Suspect]
     Active Substance: RANIBIZUMAB
     Dosage: 0.5 MG, (PREFILLED SYRINGE), (RIGHT EYE)
     Route: 065
     Dates: start: 20211013
  12. LUCENTIS [Suspect]
     Active Substance: RANIBIZUMAB
     Dosage: 0.5 MG, (PREFILLED SYRINGE), (RIGHT EYE)
     Route: 065
     Dates: start: 20211124
  13. LUCENTIS [Suspect]
     Active Substance: RANIBIZUMAB
     Dosage: 0.5 MG, (PREFILLED SYRINGE), (RIGHT EYE)
     Route: 065
     Dates: start: 20220107
  14. LUCENTIS [Suspect]
     Active Substance: RANIBIZUMAB
     Dosage: 0.5 MG, (PREFILLED SYRINGE), (RIGHT EYE)
     Route: 065
     Dates: start: 20220209
  15. LUCENTIS [Suspect]
     Active Substance: RANIBIZUMAB
     Dosage: 0.5 MG, (PREFILLED SYRINGE), (RIGHT EYE)
     Route: 065
     Dates: start: 20220316
  16. LUCENTIS [Suspect]
     Active Substance: RANIBIZUMAB
     Dosage: 0.5 MG, (PREFILLED SYRINGE), (RIGHT EYE)
     Route: 065
     Dates: start: 20220420
  17. LUCENTIS [Suspect]
     Active Substance: RANIBIZUMAB
     Dosage: 0.5 MG, (PREFILLED SYRINGE), (RIGHT EYE)
     Route: 065
     Dates: start: 20220527
  18. LUCENTIS [Suspect]
     Active Substance: RANIBIZUMAB
     Dosage: 0.5 MG, (PREFILLED SYRINGE), (RIGHT EYE)
     Route: 065
     Dates: start: 20221021
  19. BROLUCIZUMAB [Suspect]
     Active Substance: BROLUCIZUMAB
     Indication: Product used for unknown indication
     Dosage: UNK
     Route: 065
  20. AFLIBERCEPT [Suspect]
     Active Substance: AFLIBERCEPT
     Indication: Product used for unknown indication
     Dosage: UNK
     Route: 065

REACTIONS (3)
  - Fall [Recovering/Resolving]
  - Upper limb fracture [Recovering/Resolving]
  - Pelvic fracture [Recovering/Resolving]

NARRATIVE: CASE EVENT DATE: 20220101
